FAERS Safety Report 14303617 (Version 1)
Quarter: 2017Q4

REPORT INFORMATION
  Report Type: Spontaneous
  Country: CA (occurrence: CA)
  Receive Date: 20171219
  Receipt Date: 20171219
  Transmission Date: 20180321
  Serious: Yes (Hospitalization)
  Sender: FDA-Public Use
  Company Number: None

PATIENT
  Age: 71 Year
  Sex: Male
  Weight: 90 kg

DRUGS (1)
  1. DIRECT NATURLS CURCUMIN [Suspect]
     Active Substance: CURCUMIN
     Indication: ARTHRITIS
     Dosage: ?          QUANTITY:3 CAPSULE(S);?
     Route: 048
     Dates: start: 20171201, end: 20171212

REACTIONS (2)
  - Dehydration [None]
  - Malaise [None]

NARRATIVE: CASE EVENT DATE: 20171212
